FAERS Safety Report 10065119 (Version 5)
Quarter: 2014Q3

REPORT INFORMATION
  Report Type: Spontaneous
  Country: GB (occurrence: GB)
  Receive Date: 20140408
  Receipt Date: 20140702
  Transmission Date: 20150326
  Serious: Yes (Death, Other)
  Sender: FDA-Public Use
  Company Number: PHHY2014GB038236

PATIENT
  Sex: Female

DRUGS (9)
  1. FLUCLOXACILLIN [Suspect]
     Active Substance: FLUCLOXACILLIN
  2. ELIQUIS [Suspect]
     Active Substance: APIXABAN
     Indication: KNEE ARTHROPLASTY
  3. NAPROXEN. [Concomitant]
     Active Substance: NAPROXEN
  4. IBUPROFEN. [Suspect]
     Active Substance: IBUPROFEN
  5. GENTAMICIN [Suspect]
     Active Substance: GENTAMICIN
  6. RAMIPRIL. [Concomitant]
     Active Substance: RAMIPRIL
  7. METFORMIN [Suspect]
     Active Substance: METFORMIN HYDROCHLORIDE
     Indication: DIABETES MELLITUS
  8. ELIQUIS [Suspect]
     Active Substance: APIXABAN
     Indication: HIP ARTHROPLASTY
  9. NAPROXEN. [Concomitant]
     Active Substance: NAPROXEN
     Route: 065

REACTIONS (5)
  - Renal failure [Unknown]
  - Drug interaction [Unknown]
  - Blood pressure decreased [Unknown]
  - Infection [Unknown]
  - Death [Fatal]
